FAERS Safety Report 16458195 (Version 1)
Quarter: 2019Q2

REPORT INFORMATION
  Report Type: Spontaneous
  Country: US (occurrence: US)
  Receive Date: 20190620
  Receipt Date: 20190620
  Transmission Date: 20190711
  Serious: No
  Sender: FDA-Public Use
  Company Number: US-TARO-2019TAR00375

PATIENT
  Sex: Female
  Weight: 77.1 kg

DRUGS (1)
  1. METRONIDAZOLE GEL USP, 1% [Suspect]
     Active Substance: METRONIDAZOLE
     Indication: ROSACEA
     Dosage: A THIN COATING, 1X/DAY, APPLIED AT NIGHT
     Route: 061
     Dates: start: 2017, end: 201903

REACTIONS (3)
  - Acne [Recovered/Resolved]
  - Drug ineffective [Recovered/Resolved]
  - Rash papular [Recovering/Resolving]

NARRATIVE: CASE EVENT DATE: 2018
